FAERS Safety Report 12061526 (Version 3)
Quarter: 2016Q1

REPORT INFORMATION
  Report Type: Spontaneous
  Country: US (occurrence: US)
  Receive Date: 20160210
  Receipt Date: 20160301
  Transmission Date: 20160526
  Serious: Yes (Other)
  Sender: FDA-Public Use
  Company Number: US-PFIZER INC-2016021680

PATIENT
  Age: 65 Year
  Sex: Female

DRUGS (1)
  1. XELJANZ [Suspect]
     Active Substance: TOFACITINIB CITRATE
     Indication: RHEUMATOID ARTHRITIS
     Dosage: 5 MG, 2X/DAY
     Route: 048

REACTIONS (13)
  - Gastrooesophageal reflux disease [Unknown]
  - Fatigue [Unknown]
  - Anaemia [Unknown]
  - Peripheral swelling [Unknown]
  - Vomiting [Unknown]
  - Asthenia [Unknown]
  - Nausea [Unknown]
  - Abdominal pain upper [Unknown]
  - Musculoskeletal stiffness [Unknown]
  - Fluid retention [Unknown]
  - Drug ineffective [Unknown]
  - Haemolytic anaemia [Unknown]
  - Epistaxis [Unknown]

NARRATIVE: CASE EVENT DATE: 2016
